FAERS Safety Report 5145715-5 (Version None)
Quarter: 2006Q4

REPORT INFORMATION
  Report Type: 
  Country: None (occurrence: None)
  Receive Date: 20060915
  Receipt Date: 20050825
  Transmission Date: 20070319
  Serious: Yes (Other)
  Sender: FDA-Public Use
  Company Number: S05-USA-04437-01

PATIENT
  Age: 39 Year
  Sex: Female
  Weight: 60 kg

DRUGS (9)
  1. CELEXA [Suspect]
  2. ENBREL [Suspect]
     Indication: PSORIATIC ARTHROPATHY
     Dosage: 25 MG BIW SC
     Route: 058
     Dates: start: 20041210
  3. METHOTREXATE [Suspect]
     Dosage: 25 MG SC
     Route: 058
  4. PLAQUENIL [Suspect]
     Dosage: 200 MG PO
     Route: 048
  5. DILOFENAC [Suspect]
     Dosage: 75 MG BID
  6. FOLIC ACID [Suspect]
  7. DF118 (DIHYDROCODEINE BITARTRATE) [Suspect]
  8. PLAVIX [Suspect]
  9. ORAL CONTRACEPTIVE (NOS) (ORAL CONTRACEPTIVE NOS) [Suspect]

REACTIONS (1)
  - GALACTORRHOEA [None]
